FAERS Safety Report 25349427 (Version 1)
Quarter: 2025Q2

REPORT INFORMATION
  Report Type: Spontaneous
  Country: CH (occurrence: CH)
  Receive Date: 20250522
  Receipt Date: 20250522
  Transmission Date: 20250717
  Serious: Yes (Other)
  Sender: MALLINCKRODT
  Company Number: CH-MALLINCKRODT-MNK202502997

PATIENT
  Age: 66 Year
  Sex: Female

DRUGS (2)
  1. UVADEX [Suspect]
     Active Substance: METHOXSALEN
     Indication: Lichen planus
     Route: 050
  2. ACITRETIN [Concomitant]
     Active Substance: ACITRETIN

REACTIONS (2)
  - Oesophageal dysplasia [Unknown]
  - Drug effective for unapproved indication [Unknown]
